FAERS Safety Report 18528952 (Version 2)
Quarter: 2020Q4

REPORT INFORMATION
  Report Type: Spontaneous
  Country: US (occurrence: US)
  Receive Date: 20201120
  Receipt Date: 20201207
  Transmission Date: 20210114
  Serious: Yes (Other)
  Sender: FDA-Public Use
  Company Number: US-ALEMBIC PHARMACUETICALS LIMITED-2020SCAL000498

PATIENT

DRUGS (4)
  1. TERIFLUNOMIDE. [Suspect]
     Active Substance: TERIFLUNOMIDE
     Indication: RELAPSING-REMITTING MULTIPLE SCLEROSIS
     Dosage: 14 MILLIGRAM, OD
     Dates: start: 201801
  2. AZATHIOPRINE. [Concomitant]
     Active Substance: AZATHIOPRINE
     Indication: CONDITION AGGRAVATED
     Dosage: UNK
  3. TERIFLUNOMIDE. [Suspect]
     Active Substance: TERIFLUNOMIDE
     Dosage: 7 MILLIGRAM, OD
     Dates: start: 201801
  4. VEDOLIZUMAB [Concomitant]
     Active Substance: VEDOLIZUMAB
     Indication: CLINICAL GLOBAL IMPRESSION SCALE
     Dosage: UNK
     Dates: start: 201911

REACTIONS (10)
  - Gastric ulcer [Recovering/Resolving]
  - Oesophagitis [Recovering/Resolving]
  - Weight decreased [Unknown]
  - Diarrhoea [Recovering/Resolving]
  - Crohn^s disease [Unknown]
  - Ileal ulcer [Recovering/Resolving]
  - Duodenal ulcer [Recovering/Resolving]
  - Colitis [Recovering/Resolving]
  - Gastrointestinal disorder [Recovering/Resolving]
  - Large intestinal ulcer [Unknown]

NARRATIVE: CASE EVENT DATE: 201809
